FAERS Safety Report 14939533 (Version 1)
Quarter: 2018Q2

REPORT INFORMATION
  Report Type: Spontaneous
  Country: BR (occurrence: BR)
  Receive Date: 20180525
  Receipt Date: 20180525
  Transmission Date: 20180711
  Serious: Yes (Hospitalization, Other)
  Sender: FDA-Public Use
  Company Number: BR-NAPPMUNDI-GBR-2018-0056155

PATIENT
  Age: 68 Year
  Sex: Female

DRUGS (3)
  1. DIPYRONE [Concomitant]
     Active Substance: DIPYRONE
     Dosage: UNK
  2. DIMORF [Suspect]
     Active Substance: MORPHINE SULFATE
     Indication: ANALGESIC THERAPY
     Dosage: 10 MG, Q8H
     Route: 048
  3. RESTIVA [Suspect]
     Active Substance: BUPRENORPHINE
     Indication: PAIN
     Dosage: 10 MCG, Q1H (10MG PATCH)
     Route: 062
     Dates: start: 201803

REACTIONS (3)
  - Anaemia [Unknown]
  - Inadequate analgesia [Unknown]
  - Faecaloma [Unknown]

NARRATIVE: CASE EVENT DATE: 20180510
